FAERS Safety Report 15005662 (Version 1)
Quarter: 2018Q2

REPORT INFORMATION
  Report Type: Spontaneous
  Country: JP (occurrence: JP)
  Receive Date: 20180613
  Receipt Date: 20180613
  Transmission Date: 20180711
  Serious: Yes (Life-Threatening)
  Sender: FDA-Public Use
  Company Number: JP-ASTRAZENECA-2018SE66618

PATIENT
  Age: 56 Year
  Sex: Female
  Weight: 49 kg

DRUGS (5)
  1. NEXIUM [Suspect]
     Active Substance: ESOMEPRAZOLE MAGNESIUM
     Indication: GASTROOESOPHAGEAL REFLUX DISEASE
     Route: 048
     Dates: start: 20180504, end: 20180507
  2. SOL-MELCORT [Concomitant]
     Active Substance: METHYLPREDNISOLONE SODIUM SUCCINATE
     Indication: DERMATOMYOSITIS
     Route: 042
     Dates: start: 20180502, end: 20180504
  3. PREDNISOLONE. [Concomitant]
     Active Substance: PREDNISOLONE
     Dosage: NUMBER OF SEPARATE DOSAGES UNKNOWN50.0MG UNKNOWN
     Route: 065
     Dates: start: 20180505
  4. PREDONINE [Concomitant]
     Active Substance: PREDNISOLONE
     Indication: DERMATOMYOSITIS
     Dosage: 10 MG/PER DOSE, 20 MG/PER DOSE EVERY DAY
     Route: 042
     Dates: start: 20180505
  5. MAGNESIUM OXIDE. [Concomitant]
     Active Substance: MAGNESIUM OXIDE
     Indication: CONSTIPATION
     Route: 048
     Dates: start: 20180503

REACTIONS (2)
  - Thrombotic thrombocytopenic purpura [Unknown]
  - Platelet count decreased [Recovered/Resolved]

NARRATIVE: CASE EVENT DATE: 20180507
